FAERS Safety Report 13905588 (Version 1)
Quarter: 2017Q3

REPORT INFORMATION
  Report Type: Spontaneous
  Country: LV (occurrence: LV)
  Receive Date: 20170825
  Receipt Date: 20170825
  Transmission Date: 20171127
  Serious: Yes (Other)
  Sender: FDA-Public Use
  Company Number: LV-AMGEN-LVASP2017124879

PATIENT
  Age: 74 Year
  Sex: Female

DRUGS (1)
  1. PROLIA [Suspect]
     Active Substance: DENOSUMAB
     Indication: BONE DENSITY DECREASED
     Dosage: 60 MG, UNK
     Route: 065

REACTIONS (5)
  - Off label use [Unknown]
  - Blood parathyroid hormone increased [Recovering/Resolving]
  - Glomerular filtration rate increased [Unknown]
  - Asthenia [Unknown]
  - Hypophosphataemia [Recovered/Resolved]
